FAERS Safety Report 13771346 (Version 1)
Quarter: 2017Q3

REPORT INFORMATION
  Report Type: Spontaneous
  Country: US (occurrence: US)
  Receive Date: 20170720
  Receipt Date: 20170720
  Transmission Date: 20171127
  Serious: No
  Sender: FDA-Public Use
  Company Number: PHEH2017US022099

PATIENT
  Sex: Male

DRUGS (1)
  1. COSENTYX [Suspect]
     Active Substance: SECUKINUMAB
     Indication: PSORIASIS
     Dosage: UNK
     Route: 065

REACTIONS (8)
  - Blister [Recovering/Resolving]
  - Cough [Not Recovered/Not Resolved]
  - Pruritus [Recovering/Resolving]
  - Ocular hyperaemia [Recovering/Resolving]
  - Speech disorder [Unknown]
  - Skin exfoliation [Recovering/Resolving]
  - Eyelid margin crusting [Recovering/Resolving]
  - Eye swelling [Recovering/Resolving]
